FAERS Safety Report 25987825 (Version 1)
Quarter: 2025Q4

REPORT INFORMATION
  Report Type: Spontaneous
  Country: IR (occurrence: IR)
  Receive Date: 20251103
  Receipt Date: 20251103
  Transmission Date: 20260117
  Serious: Yes (Hospitalization, Other)
  Sender: STRIDES
  Company Number: IR-STRIDES ARCOLAB LIMITED-2025SP013500

PATIENT
  Age: 19 Year
  Sex: Female

DRUGS (1)
  1. SERTRALINE [Suspect]
     Active Substance: SERTRALINE HYDROCHLORIDE
     Indication: Product used for unknown indication
     Dosage: 1200 MILLIGRAM
     Route: 065

REACTIONS (3)
  - Electrocardiogram T wave inversion [Unknown]
  - Overdose [Unknown]
  - Toxicity to various agents [Unknown]
